FAERS Safety Report 9433865 (Version 1)
Quarter: 2013Q3

REPORT INFORMATION
  Report Type: Spontaneous
  Country: US (occurrence: US)
  Receive Date: 20130731
  Receipt Date: 20130731
  Transmission Date: 20140515
  Serious: No
  Sender: FDA-Public Use
  Company Number: US-009507513-1307USA006197

PATIENT
  Sex: Female

DRUGS (3)
  1. VYTORIN [Suspect]
     Indication: BLOOD CHOLESTEROL INCREASED
     Dosage: 10/20 MG ONCE DAILY
     Route: 048
  2. PRINZIDE [Concomitant]
  3. DEXILANT [Concomitant]

REACTIONS (1)
  - Gastrointestinal disorder [Not Recovered/Not Resolved]
